FAERS Safety Report 20416730 (Version 3)
Quarter: 2022Q3

REPORT INFORMATION
  Report Type: Spontaneous
  Country: JP (occurrence: JP)
  Receive Date: 20220202
  Receipt Date: 20220714
  Transmission Date: 20221027
  Serious: No
  Sender: FDA-Public Use
  Company Number: JP-GSKNCCC-Case-01409112_AE-54310

PATIENT

DRUGS (4)
  1. SOTROVIMAB [Suspect]
     Active Substance: SOTROVIMAB
     Indication: SARS-CoV-2 test positive
     Dosage: 500 MG/50 ML/30 MINUTES
     Dates: start: 20220127, end: 20220127
  2. NEORAL CAPSULES [Concomitant]
     Indication: Liver transplant
     Dosage: 25 MG, QD
  3. CERTICAN [Concomitant]
     Active Substance: EVEROLIMUS
     Indication: Liver transplant
     Dosage: 0.5 MG, QD
  4. ENTECAVIR [Concomitant]
     Active Substance: ENTECAVIR
     Indication: Hepatitis B
     Dosage: 0.5 MG, QD

REACTIONS (1)
  - Infusion related reaction [Recovered/Resolved]

NARRATIVE: CASE EVENT DATE: 20220127
